FAERS Safety Report 19150728 (Version 4)
Quarter: 2021Q2

REPORT INFORMATION
  Report Type: Report from Study
  Country: IN (occurrence: IN)
  Receive Date: 20210419
  Receipt Date: 20210521
  Transmission Date: 20210717
  Serious: Yes (Hospitalization, Other)
  Sender: FDA-Public Use
  Company Number: IN-BAXTER-2021BAX008152

PATIENT
  Age: 87 Year
  Sex: Male

DRUGS (1)
  1. PERITONEAL DIALYSIS SOLUTION WITH 1.5% DEXTROSE [Suspect]
     Active Substance: CALCIUM CHLORIDE\DEXTROSE\MAGNESIUM CHLORIDE\SODIUM CHLORIDE\SODIUM LACTATE
     Indication: RENAL FAILURE
     Dosage: 3 BAGS
     Route: 033

REACTIONS (5)
  - Hernia [Recovered/Resolved]
  - Hypophagia [Recovered/Resolved]
  - Escherichia peritonitis [Recovered/Resolved]
  - Blood albumin decreased [Recovered/Resolved]
  - Blood potassium decreased [Recovered/Resolved]
